FAERS Safety Report 25521793 (Version 1)
Quarter: 2025Q3

REPORT INFORMATION
  Report Type: Report from Study
  Country: CA (occurrence: CA)
  Receive Date: 20250706
  Receipt Date: 20250706
  Transmission Date: 20251021
  Serious: Yes (Death)
  Sender: IPSEN BIOPHARMACEUTICALS, INC.
  Company Number: CA-IPSEN Group, Research and Development-2025-15965

PATIENT
  Age: 90 Year
  Sex: Male
  Weight: 65 kg

DRUGS (12)
  1. LANREOTIDE ACETATE [Suspect]
     Active Substance: LANREOTIDE ACETATE
     Indication: Gastroenteropancreatic neuroendocrine tumour disease
     Dosage: DEEP SC
     Dates: start: 20250530
  2. CANDESARTAN [Concomitant]
     Active Substance: CANDESARTAN
  3. BISOPROLOL [Concomitant]
     Active Substance: BISOPROLOL
  4. SILODOSIN [Concomitant]
     Active Substance: SILODOSIN
  5. ROSUVASTATIN [Concomitant]
     Active Substance: ROSUVASTATIN
  6. ALLOPURINOL [Concomitant]
     Active Substance: ALLOPURINOL
  7. LOPERAMIDE [Concomitant]
     Active Substance: LOPERAMIDE
  8. PANTOPRAZOLE [Concomitant]
     Active Substance: PANTOPRAZOLE
  9. ACETAMINOPHEN [Concomitant]
     Active Substance: ACETAMINOPHEN
  10. BUTYLSCOPOLAMINE BROMIDE [Concomitant]
     Active Substance: BUTYLSCOPOLAMINE BROMIDE
  11. FAMOTIDINE [Concomitant]
     Active Substance: FAMOTIDINE
  12. dulcolax [Concomitant]

REACTIONS (1)
  - Death [Fatal]

NARRATIVE: CASE EVENT DATE: 20250617
